FAERS Safety Report 4451674-0 (Version None)
Quarter: 2004Q3

REPORT INFORMATION
  Report Type: 
  Country: None (occurrence: None)
  Receive Date: 20040915
  Receipt Date: 20030121
  Transmission Date: 20050211
  Serious: Yes (Death, Other)
  Sender: FDA-Public Use
  Company Number: 2004232406CA

PATIENT
  Age: 75 Year
  Sex: Male

DRUGS (6)
  1. ZYVOX [Suspect]
     Indication: PNEUMONIA STAPHYLOCOCCAL
     Dosage: 600 MG, BID, ORAL
     Route: 048
     Dates: start: 20011205, end: 20011220
  2. CEFTAZIDIME SODIUM [Concomitant]
  3. CIPROFLOXACIN [Concomitant]
  4. VANCOMYCIN [Concomitant]
  5. ITRACONAZOLE [Concomitant]
  6. AMPHOTERICIN B [Concomitant]

REACTIONS (2)
  - ASPERGILLOSIS [None]
  - DRUG INEFFECTIVE [None]
